FAERS Safety Report 6331680-1 (Version None)
Quarter: 2009Q3

REPORT INFORMATION
  Report Type: 
  Country: None (occurrence: None)
  Receive Date: 20090827
  Receipt Date: 20090724
  Transmission Date: 20100115
  Serious: Yes (Hospitalization, Other)
  Sender: FDA-Public Use
  Company Number: PHHY2009BR30921

PATIENT
  Age: 55 Year
  Sex: Male
  Weight: 56 kg

DRUGS (2)
  1. FORASEQ [Suspect]
     Indication: BRONCHITIS
     Dosage: 12/400 MCG, ONE INHALATION OF EACH ACTIVE COMPOUND BID
     Dates: start: 20070101, end: 20080101
  2. FORASEQ [Suspect]
     Dosage: 12/400MCG, ONE INHALATION OF EACH ACTIVE COMPOUND BID
     Dates: start: 20090101

REACTIONS (7)
  - DRUG INEFFECTIVE [None]
  - LUNG NEOPLASM SURGERY [None]
  - MEDICATION ERROR [None]
  - METASTASES TO LUNG [None]
  - SARCOMA [None]
  - SURGERY [None]
  - TREATMENT NONCOMPLIANCE [None]
